FAERS Safety Report 23076289 (Version 1)
Quarter: 2023Q4

REPORT INFORMATION
  Report Type: Spontaneous
  Country: US (occurrence: None)
  Receive Date: 20231017
  Receipt Date: 20231017
  Transmission Date: 20240110
  Serious: Yes (Hospitalization, Other)
  Sender: FDA-Public Use
  Company Number: None

PATIENT
  Age: 51 Year
  Sex: Female
  Weight: 93.15 kg

DRUGS (12)
  1. PROTONIX [Suspect]
     Active Substance: PANTOPRAZOLE SODIUM
     Indication: Gastrooesophageal reflux disease
     Dosage: OTHER QUANTITY : 1 TABLET(S);?FREQUENCY : TWICE A DAY;?
     Route: 048
     Dates: start: 20200101
  2. LEVETIRACETAM [Concomitant]
     Active Substance: LEVETIRACETAM
  3. VITAMIN D2 [Concomitant]
     Active Substance: ERGOCALCIFEROL
  4. CYANOCOBALAMIN [Concomitant]
     Active Substance: CYANOCOBALAMIN
  5. REPATHA [Concomitant]
     Active Substance: EVOLOCUMAB
  6. FUROSEMIDE [Suspect]
     Active Substance: FUROSEMIDE
  7. DICYCLOMINE [Concomitant]
     Active Substance: DICYCLOMINE HYDROCHLORIDE
  8. MECLIZINE [Concomitant]
     Active Substance: MECLIZINE HYDROCHLORIDE
  9. LOSARTAN [Concomitant]
     Active Substance: LOSARTAN
  10. RANOLAZINE [Concomitant]
     Active Substance: RANOLAZINE
  11. Vitamin E [Concomitant]
  12. FISH OIL [Concomitant]
     Active Substance: FISH OIL

REACTIONS (15)
  - Urinary tract infection [None]
  - Nephrolithiasis [None]
  - Cystitis [None]
  - Precancerous lesion of digestive tract [None]
  - Precancerous lesion of digestive tract [None]
  - Pain [None]
  - Nausea [None]
  - Fatigue [None]
  - Vitamin B12 deficiency [None]
  - Vitamin D deficiency [None]
  - Infection [None]
  - Seizure [None]
  - Dizziness [None]
  - Headache [None]
  - Balance disorder [None]

NARRATIVE: CASE EVENT DATE: 20221022
